FAERS Safety Report 20628665 (Version 1)
Quarter: 2022Q1

REPORT INFORMATION
  Report Type: Spontaneous
  Country: US (occurrence: None)
  Receive Date: 20220323
  Receipt Date: 20220323
  Transmission Date: 20220423
  Serious: No
  Sender: FDA-Public Use
  Company Number: None

PATIENT
  Age: 65 Year
  Sex: Female

DRUGS (1)
  1. SPRYCEL [Suspect]
     Active Substance: DASATINIB
     Dosage: FREQUENCY : DAILY;?
     Route: 048
     Dates: start: 202202

REACTIONS (4)
  - Fall [None]
  - Headache [None]
  - Diverticulitis [None]
  - Pulmonary oedema [None]

NARRATIVE: CASE EVENT DATE: 20220321
